FAERS Safety Report 4593495-4 (Version None)
Quarter: 2005Q1

REPORT INFORMATION
  Report Type: 
  Country: None (occurrence: None)
  Receive Date: 20050224
  Receipt Date: 20040722
  Transmission Date: 20050727
  Serious: No
  Sender: FDA-Public Use
  Company Number: US-BRISTOL-MYERS SQUIBB COMPANY-12657771

PATIENT
  Age: 25 Year
  Sex: Male
  Weight: 68 kg

DRUGS (2)
  1. EXCEDRIN (MIGRAINE) [Suspect]
     Dosage: NUMBER OF DOSES: 4 TABS ON 20-JUL-04; 2 TABS ON 21-JUL-04; AND 2 TABS ON 22-JUL-04.
     Dates: start: 20040720, end: 20040722
  2. INHALERS [Concomitant]
     Indication: ASTHMA
     Route: 055

REACTIONS (1)
  - NAUSEA [None]
